FAERS Safety Report 13265446 (Version 2)
Quarter: 2017Q2

REPORT INFORMATION
  Report Type: Report from Study
  Country: US (occurrence: US)
  Receive Date: 20170223
  Receipt Date: 20170406
  Transmission Date: 20170830
  Serious: Yes (Hospitalization, Other)
  Sender: FDA-Public Use
  Company Number: US-ARIAD-2016US006612

PATIENT
  Age: 20 Year
  Sex: Male

DRUGS (3)
  1. ICLUSIG [Suspect]
     Active Substance: PONATINIB
     Dosage: 45 MG, QD
     Route: 048
  2. ICLUSIG [Suspect]
     Active Substance: PONATINIB
     Indication: ACUTE LYMPHOCYTIC LEUKAEMIA
     Dosage: 45 MG, QD
     Route: 048
     Dates: start: 20160418
  3. ICLUSIG [Suspect]
     Active Substance: PONATINIB
     Dosage: 45 MG, QD
     Route: 048

REACTIONS (25)
  - Parotitis [Unknown]
  - Nasogastric output high [Unknown]
  - Renal failure [Unknown]
  - Asthenia [Unknown]
  - Respiratory failure [Unknown]
  - Bone marrow transplant [Unknown]
  - Sepsis [Not Recovered/Not Resolved]
  - Weight gain poor [Not Recovered/Not Resolved]
  - Eyelid ptosis [Unknown]
  - Radiotherapy [Unknown]
  - Sialocele [Unknown]
  - Complication associated with device [Not Recovered/Not Resolved]
  - Hospitalisation [Unknown]
  - Peroneal nerve palsy [Not Recovered/Not Resolved]
  - Contusion [Unknown]
  - Myalgia [Unknown]
  - Acute respiratory distress syndrome [Unknown]
  - Colectomy [Unknown]
  - Decreased appetite [Unknown]
  - Graft versus host disease in skin [Unknown]
  - Hyperglycaemia [Unknown]
  - Acute lymphocytic leukaemia recurrent [Unknown]
  - Depression [Unknown]
  - Central venous catheterisation [Unknown]
  - Stem cell transplant [Unknown]

NARRATIVE: CASE EVENT DATE: 20160908
